FAERS Safety Report 9220567 (Version 2)
Quarter: 2013Q2

REPORT INFORMATION
  Report Type: Spontaneous
  Country: FR (occurrence: FR)
  Receive Date: 20130409
  Receipt Date: 20130426
  Transmission Date: 20140414
  Serious: Yes (Death, Life-Threatening, Hospitalization)
  Sender: FDA-Public Use
  Company Number: FR-B.I. PHARMACEUTICALS,INC./RIDGEFIELD-2013-FF-01077FF

PATIENT
  Age: 78 Year
  Sex: Female

DRUGS (7)
  1. PRADAXA [Suspect]
     Indication: ATRIAL FIBRILLATION
     Dosage: 300 MG
     Route: 048
  2. OGAST [Concomitant]
     Indication: ABDOMINAL PAIN UPPER
     Route: 048
  3. OGAST [Concomitant]
     Indication: GASTRITIS
  4. LEVOTHYROX [Concomitant]
     Dosage: 75MCG + HALF OF 25MCG
     Route: 048
  5. KENZEN [Concomitant]
     Dosage: 2 MG
     Route: 048
  6. PRACTAZINE [Concomitant]
     Route: 048
  7. ATENOLOL [Concomitant]
     Dosage: 50 MG
     Route: 048

REACTIONS (1)
  - Pancreatitis haemorrhagic [Fatal]
